FAERS Safety Report 6312597-5 (Version None)
Quarter: 2009Q3

REPORT INFORMATION
  Report Type: 
  Country: None (occurrence: None)
  Receive Date: 20090813
  Receipt Date: 20090804
  Transmission Date: 20100115
  Serious: Yes (Death, Hospitalization)
  Sender: FDA-Public Use
  Company Number: 2009AL002829

PATIENT
  Age: 45 Year
  Sex: Male

DRUGS (25)
  1. DIGOXIN [Suspect]
     Dosage: 0.25MG, DAILY, PO
     Route: 048
     Dates: start: 19970901
  2. HYDRALAZINE HCL [Concomitant]
  3. METOPROLOL [Concomitant]
  4. LISINOPRIL [Concomitant]
  5. POTASSIUM CHLORIDE [Concomitant]
  6. METFORMIN HCL [Concomitant]
  7. FUROSEMIDE [Concomitant]
  8. ACIPHEX [Concomitant]
  9. CYPROHEPTAD [Concomitant]
  10. PLAVIX [Concomitant]
  11. TRICOR [Concomitant]
  12. CLONIDINE [Concomitant]
  13. NOVOLIN R [Concomitant]
  14. LANTUS [Concomitant]
  15. ENDOCET [Concomitant]
  16. AZITHROMYCIN [Concomitant]
  17. CEPHALEXIN [Concomitant]
  18. LORAZEPAM [Concomitant]
  19. PRILOSEC [Concomitant]
  20. AMOXICILLIN [Concomitant]
  21. LEVAQUIN [Concomitant]
  22. ADVAIR HFA [Concomitant]
  23. LIDODERM [Concomitant]
  24. CLINDAMYCIN [Concomitant]
  25. LOVAZA [Concomitant]

REACTIONS (5)
  - ANGINA UNSTABLE [None]
  - BRONCHITIS [None]
  - ECONOMIC PROBLEM [None]
  - INJURY [None]
  - PNEUMONIA [None]
